FAERS Safety Report 14342829 (Version 1)
Quarter: 2018Q1

REPORT INFORMATION
  Report Type: Spontaneous
  Country: DE (occurrence: DE)
  Receive Date: 20180102
  Receipt Date: 20180102
  Transmission Date: 20180509
  Serious: Yes (Other)
  Sender: FDA-Public Use
  Company Number: DE-GUERBET-DE-20170043

PATIENT
  Sex: Male

DRUGS (2)
  1. THILORBIN [Concomitant]
     Indication: INTRAOCULAR PRESSURE TEST
     Route: 031
     Dates: start: 201701
  2. DOTAREM [Suspect]
     Active Substance: GADOTERATE MEGLUMINE
     Indication: NUCLEAR MAGNETIC RESONANCE IMAGING
     Route: 042
     Dates: start: 20170117, end: 20170117

REACTIONS (10)
  - Hepatic cyst [Unknown]
  - Swelling [Not Recovered/Not Resolved]
  - Adrenal adenoma [Unknown]
  - Emotional distress [Not Recovered/Not Resolved]
  - Cardiac valve thickening [Unknown]
  - Renal cyst [Unknown]
  - Splenomegaly [Unknown]
  - Dry eye [Unknown]
  - Ocular hypertension [Unknown]
  - Insomnia [Not Recovered/Not Resolved]

NARRATIVE: CASE EVENT DATE: 201701
